FAERS Safety Report 18893073 (Version 1)
Quarter: 2021Q1

REPORT INFORMATION
  Report Type: Report from Study
  Country: GB (occurrence: GB)
  Receive Date: 20210215
  Receipt Date: 20210215
  Transmission Date: 20210420
  Serious: Yes (Other)
  Sender: FDA-Public Use
  Company Number: NVSC2021GB020840

PATIENT
  Sex: Female

DRUGS (1)
  1. HYRIMOZ [Suspect]
     Active Substance: ADALIMUMAB-ADAZ
     Indication: PSORIASIS
     Dosage: UNK, 40MG/0.8ML EOW
     Route: 058
     Dates: start: 20190614

REACTIONS (13)
  - COVID-19 [Not Recovered/Not Resolved]
  - Dyspnoea [Unknown]
  - Drug ineffective [Unknown]
  - Body temperature increased [Unknown]
  - Malaise [Unknown]
  - Cough [Unknown]
  - Illness [Unknown]
  - Product dose omission issue [Unknown]
  - Fall [Unknown]
  - Psoriasis [Unknown]
  - COVID-19 pneumonia [Not Recovered/Not Resolved]
  - Alopecia [Unknown]
  - Dry skin [Unknown]
